FAERS Safety Report 7005320-2 (Version None)
Quarter: 2010Q3

REPORT INFORMATION
  Report Type: 
  Country: None (occurrence: None)
  Receive Date: 20100921
  Receipt Date: 20100910
  Transmission Date: 20110219
  Serious: Yes (Other)
  Sender: FDA-Public Use
  Company Number: US-BAYER-201033776NA

PATIENT
  Age: 26 Year
  Sex: Female

DRUGS (3)
  1. YAZ [Suspect]
     Indication: ORAL CONTRACEPTION
     Route: 048
     Dates: start: 20070701, end: 20080901
  2. YASMIN [Suspect]
     Indication: ORAL CONTRACEPTION
     Route: 048
     Dates: start: 20070701, end: 20080901
  3. OCELLA [Suspect]
     Indication: ORAL CONTRACEPTION
     Route: 048
     Dates: start: 20070701, end: 20080901

REACTIONS (1)
  - CHOLECYSTECTOMY [None]
